FAERS Safety Report 4319503-3 (Version None)
Quarter: 2004Q1

REPORT INFORMATION
  Report Type: 
  Country: None (occurrence: None)
  Receive Date: 20040318
  Receipt Date: 20040318
  Transmission Date: 20041129
  Serious: Yes (Other)
  Sender: FDA-Public Use
  Company Number: None

PATIENT
  Sex: Female
  Weight: 53.978 kg

DRUGS (2)
  1. DIAZEPAM [Suspect]
     Indication: CHEST PAIN
     Dosage: 10 MG PO BID
     Route: 048
  2. DIAZEPAM [Suspect]
     Indication: EPILEPSY
     Dosage: 10 MG PO BID
     Route: 048

REACTIONS (2)
  - DRUG INEFFECTIVE [None]
  - PHARMACEUTICAL PRODUCT COMPLAINT [None]
